FAERS Safety Report 6865290-4 (Version None)
Quarter: 2010Q3

REPORT INFORMATION
  Report Type: 
  Country: None (occurrence: None)
  Receive Date: 20100721
  Receipt Date: 20080611
  Transmission Date: 20110219
  Serious: No
  Sender: FDA-Public Use
  Company Number: US-PFIZER INC-2008035547

PATIENT
  Sex: Female

DRUGS (11)
  1. CHANTIX [Suspect]
     Indication: SMOKING CESSATION THERAPY
     Dates: start: 20070101
  2. LEXAPRO [Concomitant]
  3. ALBUTEROL [Concomitant]
  4. LIPITOR [Concomitant]
  5. NEXIUM [Concomitant]
  6. L-LYSINE [Concomitant]
  7. CENTRUM SILVER [Concomitant]
  8. LOVAZA [Concomitant]
  9. BENADRYL [Concomitant]
     Indication: HYPERSENSITIVITY
  10. MENTAX [Concomitant]
  11. ACETYLSALICYLIC ACID [Concomitant]

REACTIONS (6)
  - ANXIETY [None]
  - BLOOD CHOLESTEROL INCREASED [None]
  - CONSTIPATION [None]
  - INSOMNIA [None]
  - NIGHTMARE [None]
  - WEIGHT INCREASED [None]
